FAERS Safety Report 4648387-9 (Version None)
Quarter: 2005Q2

REPORT INFORMATION
  Report Type: 
  Country: None (occurrence: None)
  Receive Date: 20050427
  Receipt Date: 20050413
  Transmission Date: 20051028
  Serious: Yes (Other)
  Sender: FDA-Public Use
  Company Number: GBS050417144

PATIENT
  Age: 58 Year
  Sex: Female

DRUGS (4)
  1. YENTREVE (DULOXETINE HYDROCHLORIDE) [Suspect]
     Indication: STRESS INCONTINENCE
     Dosage: 40 MG/2 DAY
     Dates: start: 20050317, end: 20050323
  2. PREMIQUE [Concomitant]
  3. BENDROFLUAZIDE [Concomitant]
  4. CANDESARTAN [Concomitant]

REACTIONS (5)
  - ABDOMINAL DISTENSION [None]
  - HYPERHIDROSIS [None]
  - HYPONATRAEMIA [None]
  - MALAISE [None]
  - NAUSEA [None]
